FAERS Safety Report 8933619 (Version 1)
Quarter: 2012Q4

REPORT INFORMATION
  Report Type: 
  Country: US (occurrence: US)
  Receive Date: 20121128
  Receipt Date: 20121128
  Transmission Date: 20130627
  Serious: No
  Sender: FDA-Public Use
  Company Number: US-ABBOTT-12P-163-0966159-00

PATIENT
  Sex: Male
  Weight: 68.1 kg

DRUGS (2)
  1. ANDROGEL 1.62% [Suspect]
     Indication: BLOOD TESTOSTERONE DECREASED
     Dosage: Three pumps per day
     Dates: start: 2012
  2. ANDROGEL 1.62% [Suspect]
     Dosage: Four pumps per day
     Dates: start: 2012

REACTIONS (3)
  - Blood testosterone decreased [Not Recovered/Not Resolved]
  - Overdose [Unknown]
  - Dysphonia [Not Recovered/Not Resolved]
